FAERS Safety Report 14221014 (Version 1)
Quarter: 2017Q4

REPORT INFORMATION
  Report Type: Spontaneous
  Country: US (occurrence: US)
  Receive Date: 20171124
  Receipt Date: 20171124
  Transmission Date: 20180321
  Serious: Yes (Hospitalization, Other)
  Sender: FDA-Public Use
  Company Number: US-PFIZER INC-2017499959

PATIENT
  Age: 80 Year
  Sex: Female
  Weight: 50.35 kg

DRUGS (11)
  1. DILANTIN [Suspect]
     Active Substance: PHENYTOIN
     Indication: SEIZURE
     Dosage: 200 MG, 1X/DAY (TWO 100 MG CAPSULES AT BEDTIME)
     Route: 048
     Dates: start: 1953
  2. TIMOLOL. [Concomitant]
     Active Substance: TIMOLOL
     Indication: GLAUCOMA
     Dosage: UNK
     Dates: start: 2012
  3. BONIVA [Concomitant]
     Active Substance: IBANDRONATE SODIUM
     Indication: OSTEOPOROSIS
     Dosage: UNK
  4. MYSOLINE [Concomitant]
     Active Substance: PRIMIDONE
     Indication: ESSENTIAL TREMOR
     Dosage: 0.5 DF, 2X/DAY (0.5 TABLET TWICE A DAY)
     Route: 048
  5. HYDROCHLOROTHIAZIDE. [Concomitant]
     Active Substance: HYDROCHLOROTHIAZIDE
     Indication: PERIPHERAL SWELLING
     Dosage: UNK
     Dates: start: 2015
  6. AMOXAPINE. [Concomitant]
     Active Substance: AMOXAPINE
     Indication: ANTIDEPRESSANT THERAPY
     Dosage: UNK
  7. PHENOBARBITAL. [Concomitant]
     Active Substance: PHENOBARBITAL
     Indication: SEIZURE
     Dosage: 64.8 MG, 1X/DAY (2 TABLETS AT BED TIME)
     Route: 048
     Dates: start: 1953
  8. IBANDRONATE [Concomitant]
     Active Substance: IBANDRONATE SODIUM
     Indication: OSTEOPETROSIS
     Dosage: 1 DF, MONTHLY
  9. DILANTIN [Suspect]
     Active Substance: PHENYTOIN
     Indication: EPILEPSY
  10. DILANTIN [Suspect]
     Active Substance: PHENYTOIN
     Indication: ESSENTIAL TREMOR
  11. FOSAMAX [Concomitant]
     Active Substance: ALENDRONATE SODIUM
     Indication: OSTEOPOROSIS
     Dosage: UNK

REACTIONS (14)
  - Fall [Unknown]
  - Glaucoma [Not Recovered/Not Resolved]
  - Sleep apnoea syndrome [Unknown]
  - Drug level above therapeutic [Unknown]
  - Alopecia [Unknown]
  - Lower limb fracture [Unknown]
  - Condition aggravated [Not Recovered/Not Resolved]
  - Hand fracture [Unknown]
  - Somnolence [Unknown]
  - Spinal fracture [Unknown]
  - Rib fracture [Unknown]
  - Drug ineffective [Unknown]
  - Dizziness [Unknown]
  - Asthenia [Unknown]

NARRATIVE: CASE EVENT DATE: 2012
